FAERS Safety Report 4340044-1 (Version None)
Quarter: 2004Q2

REPORT INFORMATION
  Report Type: 
  Country: None (occurrence: None)
  Receive Date: 20040416
  Receipt Date: 20040311
  Transmission Date: 20050107
  Serious: Yes (Hospitalization)
  Sender: FDA-Public Use
  Company Number: JP-ROCHE-361724

PATIENT
  Age: 2 Year
  Sex: Male
  Weight: 9 kg

DRUGS (14)
  1. ROCEPHIN [Suspect]
     Indication: INFLUENZA
     Route: 041
     Dates: start: 20030819, end: 20030904
  2. CLAFORAN [Suspect]
     Indication: INFLUENZA
     Route: 042
     Dates: start: 20030906, end: 20030917
  3. CEFOTAX [Suspect]
     Indication: INFECTION
     Route: 042
     Dates: start: 20030813, end: 20030818
  4. GLOVENIN-I [Concomitant]
     Route: 042
     Dates: start: 20030813
  5. VICCILLIN [Concomitant]
     Indication: INFECTION
     Route: 042
     Dates: start: 20030813, end: 20030815
  6. PIPERACILLIN SODIUM [Concomitant]
     Indication: INFECTION
     Dosage: DESCRIBED AS TAIPERACILIN.
     Route: 042
     Dates: start: 20030815, end: 20030819
  7. BROACT [Concomitant]
     Indication: INFECTION
     Route: 042
     Dates: start: 20030818, end: 20030819
  8. ALEVIATIN [Concomitant]
     Indication: CONVULSION
     Route: 048
     Dates: start: 20030815, end: 20030819
  9. GLYCEOL [Concomitant]
     Indication: BRAIN OEDEMA
     Route: 042
     Dates: start: 20030814, end: 20030816
  10. DECADRON [Concomitant]
     Indication: INFLAMMATION
     Route: 042
     Dates: start: 20030813, end: 20030815
  11. LAC-B [Concomitant]
     Indication: DIARRHOEA
     Route: 048
     Dates: start: 20030818, end: 20030819
  12. PENTCILLIN [Concomitant]
     Indication: INFLUENZA
     Route: 042
     Dates: start: 20030819, end: 20030820
  13. CARBENIN [Concomitant]
     Indication: INFLUENZA
     Route: 042
     Dates: start: 20030820, end: 20030903
  14. CHLOROMYCETIN [Concomitant]
     Indication: INFLUENZA
     Route: 042
     Dates: start: 20030828, end: 20030920

REACTIONS (5)
  - CONVULSION [None]
  - LYMPHOCYTE STIMULATION TEST POSITIVE [None]
  - MENINGITIS ASEPTIC [None]
  - MENINGITIS HAEMOPHILUS [None]
  - MONOPARESIS [None]
